FAERS Safety Report 5026007-1 (Version None)
Quarter: 2006Q2

REPORT INFORMATION
  Report Type: 
  Country: None (occurrence: None)
  Receive Date: 20060614
  Receipt Date: 20051004
  Transmission Date: 20061013
  Serious: Yes (Hospitalization)
  Sender: FDA-Public Use
  Company Number: BE-ROCHE-420054

PATIENT
  Age: 31 Year
  Sex: Female
  Weight: 65.4 kg

DRUGS (8)
  1. ENFUVIRTIDE [Suspect]
     Indication: HIV INFECTION
     Route: 058
     Dates: start: 20040723
  2. BLINDED PLACEBO [Suspect]
     Indication: HIV INFECTION
     Dosage: FREQUENCY = 2 IN 1 DAY
     Route: 048
     Dates: start: 20050428
  3. VIREAD [Concomitant]
     Indication: DRUG USE FOR UNKNOWN INDICATION
     Route: 048
     Dates: start: 20050418
  4. VIDEX EC [Concomitant]
     Indication: DRUG USE FOR UNKNOWN INDICATION
     Route: 048
     Dates: start: 20050217
  5. KALETRA [Concomitant]
     Indication: DRUG USE FOR UNKNOWN INDICATION
     Route: 048
     Dates: start: 20050428
  6. FOSAMPRENAVIR [Concomitant]
     Indication: DRUG USE FOR UNKNOWN INDICATION
     Route: 048
     Dates: start: 20050428
  7. LAMIVUDINE [Concomitant]
     Indication: DRUG USE FOR UNKNOWN INDICATION
     Route: 048
     Dates: start: 20050428
  8. COTRIM [Concomitant]
     Indication: DRUG USE FOR UNKNOWN INDICATION
     Dosage: TRADE NAME = COTRIMOXAZOL FORTE
     Route: 048

REACTIONS (4)
  - CONDITION AGGRAVATED [None]
  - LYMPHOCYTE TRANSFORMATION TEST POSITIVE [None]
  - PURPURA [None]
  - URTICARIA [None]
